FAERS Safety Report 4951115-0 (Version None)
Quarter: 2006Q1

REPORT INFORMATION
  Report Type: 
  Country: None (occurrence: None)
  Receive Date: 20060322
  Receipt Date: 20050628
  Transmission Date: 20060701
  Serious: Yes (Hospitalization)
  Sender: FDA-Public Use
  Company Number: US-MERCK-0506USA03974

PATIENT
  Age: 78 Year
  Sex: Female
  Weight: 57 kg

DRUGS (2)
  1. VIOXX [Suspect]
     Indication: ARTHRITIS
     Route: 048
     Dates: start: 20011001, end: 20040201
  2. ASPIRIN [Concomitant]
     Route: 065

REACTIONS (25)
  - ANGINA PECTORIS [None]
  - ARTHRITIS [None]
  - CEREBRAL INFARCTION [None]
  - CEREBROVASCULAR ACCIDENT [None]
  - CHRONIC OBSTRUCTIVE PULMONARY DISEASE [None]
  - DIPLOPIA [None]
  - DRUG HYPERSENSITIVITY [None]
  - DYSAESTHESIA [None]
  - EAR DISCOMFORT [None]
  - FALL [None]
  - HAEMORRHOIDS [None]
  - HYPERTENSION [None]
  - INJURY [None]
  - JOINT DISLOCATION [None]
  - MACULAR DEGENERATION [None]
  - NAUSEA [None]
  - NEURALGIA [None]
  - OSTEOPOROSIS [None]
  - PHONOPHOBIA [None]
  - PSORIASIS [None]
  - SOMNOLENCE [None]
  - URINARY TRACT INFECTION [None]
  - VOMITING [None]
  - WEIGHT DECREASED [None]
  - WRIST FRACTURE [None]
